FAERS Safety Report 10078549 (Version 8)
Quarter: 2015Q3

REPORT INFORMATION
  Report Type: Report from Study
  Country: US (occurrence: US)
  Receive Date: 20140415
  Receipt Date: 20150724
  Transmission Date: 20151125
  Serious: Yes (Other)
  Sender: FDA-Public Use
  Company Number: US-SA-2014SA000360

PATIENT
  Age: 73 Year
  Sex: Male

DRUGS (3)
  1. AUBAGIO [Suspect]
     Active Substance: TERIFLUNOMIDE
     Indication: MULTIPLE SCLEROSIS
     Route: 048
  2. AUBAGIO [Suspect]
     Active Substance: TERIFLUNOMIDE
     Indication: MULTIPLE SCLEROSIS
     Route: 048
     Dates: start: 20131213
  3. MINERALS NOS/VITAMINS NOS [Concomitant]
     Dates: start: 20131213

REACTIONS (23)
  - Memory impairment [Not Recovered/Not Resolved]
  - Gait disturbance [Recovering/Resolving]
  - Tremor [Not Recovered/Not Resolved]
  - Confusional state [Unknown]
  - Asthenia [Unknown]
  - Dysgraphia [Not Recovered/Not Resolved]
  - Abdominal discomfort [Unknown]
  - Condition aggravated [Unknown]
  - Impaired driving ability [Unknown]
  - Slow response to stimuli [Unknown]
  - Influenza [Unknown]
  - General physical health deterioration [Unknown]
  - Depressed mood [Unknown]
  - Speech disorder [Unknown]
  - Multiple sclerosis [Unknown]
  - Fatigue [Unknown]
  - Breast enlargement [Unknown]
  - Feeling of body temperature change [Unknown]
  - Weight decreased [Unknown]
  - Drug dose omission [Unknown]
  - Balance disorder [Recovering/Resolving]
  - Depression [Unknown]
  - Mental status changes [Unknown]

NARRATIVE: CASE EVENT DATE: 201312
